FAERS Safety Report 7201495-0 (Version None)
Quarter: 2010Q4

REPORT INFORMATION
  Report Type: 
  Country: None (occurrence: None)
  Receive Date: 20101216
  Receipt Date: 20101201
  Transmission Date: 20110411
  Serious: Yes (Hospitalization)
  Sender: FDA-Public Use
  Company Number: 2010-4097

PATIENT
  Sex: Female

DRUGS (2)
  1. SOMATULINE DEPOT [Suspect]
     Indication: ABDOMINAL DISCOMFORT
     Dosage: 60MG EVERY 28 DAYS (60 MG,1 IN 38 D),INTRAMUSCULAR
     Route: 030
     Dates: start: 20071012
  2. SOMATULINE DEPOT [Suspect]
     Indication: DIARRHOEA
     Dosage: 60MG EVERY 28 DAYS (60 MG,1 IN 38 D),INTRAMUSCULAR
     Route: 030
     Dates: start: 20071012

REACTIONS (4)
  - ABDOMINAL PAIN [None]
  - DIARRHOEA [None]
  - MALAISE [None]
  - OFF LABEL USE [None]
